FAERS Safety Report 13964341 (Version 1)
Quarter: 2017Q3

REPORT INFORMATION
  Report Type: Spontaneous
  Country: JP (occurrence: JP)
  Receive Date: 20170913
  Receipt Date: 20170913
  Transmission Date: 20171128
  Serious: Yes (Death)
  Sender: FDA-Public Use
  Company Number: JP-ACTELION-A-CH2017-159064

PATIENT
  Age: 62 Year
  Sex: Female

DRUGS (5)
  1. OPSUMIT [Suspect]
     Active Substance: MACITENTAN
     Indication: THROMBOTIC MICROANGIOPATHY
  2. UPTRAVI [Suspect]
     Active Substance: SELEXIPAG
     Indication: LUNG NEOPLASM
     Dosage: 0.8 MG, QD
     Route: 048
     Dates: start: 20170619
  3. EPOPROSTENOL ACT [Concomitant]
     Active Substance: EPOPROSTENOL
  4. OPSUMIT [Suspect]
     Active Substance: MACITENTAN
     Indication: LUNG NEOPLASM
     Dosage: UNK
     Route: 048
  5. UPTRAVI [Suspect]
     Active Substance: SELEXIPAG
     Indication: THROMBOTIC MICROANGIOPATHY

REACTIONS (3)
  - Thrombotic microangiopathy [Fatal]
  - Lung neoplasm [Fatal]
  - Disease progression [Fatal]

NARRATIVE: CASE EVENT DATE: 201708
